FAERS Safety Report 16403588 (Version 1)
Quarter: 2019Q2

REPORT INFORMATION
  Report Type: Spontaneous
  Country: GB (occurrence: GB)
  Receive Date: 20190607
  Receipt Date: 20190607
  Transmission Date: 20190711
  Serious: Yes (Other)
  Sender: FDA-Public Use
  Company Number: GB-AUROBINDO-AUR-APL-2019-029592

PATIENT

DRUGS (5)
  1. OLANZAPINE. [Suspect]
     Active Substance: OLANZAPINE
     Indication: SCHIZOPHRENIA
     Dosage: UNK
     Route: 065
  2. OLANZAPINE. [Suspect]
     Active Substance: OLANZAPINE
     Dosage: 60 MILLIGRAM, ONCE A DAY (INITIAL DOSE NOT STATED; DOSE INCREASED UP TO 60MG/DAY ON HIS OWN ACCORD)
     Route: 048
  3. ZUCLOPENTHIXOL [Concomitant]
     Active Substance: ZUCLOPENTHIXOL
     Indication: SCHIZOPHRENIA
  4. ZUCLOPENTHIXOL [Concomitant]
     Active Substance: ZUCLOPENTHIXOL
     Indication: HALLUCINATION
     Dosage: 30 MILLIGRAM, TWO TIMES A DAY
     Route: 048
  5. OLANZAPINE. [Suspect]
     Active Substance: OLANZAPINE
     Dosage: 15 MILLIGRAM, ONCE A DAY
     Route: 048

REACTIONS (8)
  - Drug withdrawal syndrome [Recovering/Resolving]
  - Hallucination [Recovered/Resolved]
  - Tachyphrenia [Recovered/Resolved]
  - Paranoia [Recovering/Resolving]
  - Intentional overdose [Unknown]
  - Emotional distress [Recovered/Resolved]
  - Product administration interrupted [Unknown]
  - Intentional product misuse [Unknown]
